FAERS Safety Report 9009548 (Version 1)
Quarter: 2013Q1

REPORT INFORMATION
  Report Type: Spontaneous
  Country: AU (occurrence: AU)
  Receive Date: 20130110
  Receipt Date: 20130110
  Transmission Date: 20140127
  Serious: Yes (Hospitalization)
  Sender: FDA-Public Use
  Company Number: AU-ASTRAZENECA-2013SE00954

PATIENT
  Age: 57 Year
  Sex: Male

DRUGS (9)
  1. NEXIUM [Suspect]
     Route: 048
  2. CRESTOR [Suspect]
     Route: 048
  3. RAMIPRIL [Suspect]
     Route: 048
  4. DIAMICRON [Suspect]
     Route: 048
  5. DIABEX [Suspect]
     Route: 048
  6. CARTIA [Suspect]
     Route: 048
  7. ZOLOFT [Suspect]
     Route: 048
  8. PRADAXA [Suspect]
     Indication: ATRIAL FIBRILLATION
     Route: 065
     Dates: end: 201210
  9. EZETROL [Suspect]
     Route: 065

REACTIONS (3)
  - Chest pain [Recovered/Resolved]
  - Pain [Recovered/Resolved]
  - Pancreatitis acute [Unknown]
